FAERS Safety Report 14107510 (Version 1)
Quarter: 2017Q4

REPORT INFORMATION
  Report Type: Spontaneous
  Country: US (occurrence: None)
  Receive Date: 20171019
  Receipt Date: 20171019
  Transmission Date: 20180321
  Serious: No
  Sender: FDA-Public Use
  Company Number: None

PATIENT
  Age: 58 Year
  Sex: Male

DRUGS (1)
  1. TACROLIMUS 1MG [Suspect]
     Active Substance: TACROLIMUS
     Indication: TRANSPLANT
     Dosage: 1 MG 2 QAM 2 QPM BY MOUTH
     Route: 048
     Dates: start: 20170217

REACTIONS (1)
  - Cardiac disorder [None]

NARRATIVE: CASE EVENT DATE: 20170927
